FAERS Safety Report 8860957 (Version 7)
Quarter: 2014Q4

REPORT INFORMATION
  Report Type: Spontaneous
  Country: US (occurrence: US)
  Receive Date: 20121025
  Receipt Date: 20141016
  Transmission Date: 20150529
  Serious: Yes (Hospitalization, Disabling, Other)
  Sender: FDA-Public Use
  Company Number: US-009507513-1210USA005987

PATIENT
  Sex: Female
  Weight: 87.98 kg

DRUGS (3)
  1. ALENDRONATE SODIUM. [Suspect]
     Active Substance: ALENDRONATE SODIUM
     Dosage: 70 MG, UNK
     Dates: start: 20110202, end: 20110217
  2. FOSAMAX [Suspect]
     Active Substance: ALENDRONATE SODIUM
     Indication: OSTEOPOROSIS
     Dosage: 70 MG, QW
     Route: 048
     Dates: start: 2008, end: 201010
  3. FOSAMAX [Suspect]
     Active Substance: ALENDRONATE SODIUM
     Indication: OSTEOPOROSIS
     Dosage: 70 MG, QW
     Route: 048
     Dates: start: 20030123, end: 2008

REACTIONS (26)
  - Low turnover osteopathy [Not Recovered/Not Resolved]
  - Intramedullary rod insertion [Unknown]
  - Sciatica [Unknown]
  - Device failure [Unknown]
  - Tooth disorder [Not Recovered/Not Resolved]
  - Sleep disorder [Not Recovered/Not Resolved]
  - Dental caries [Unknown]
  - Transfusion [Unknown]
  - Femur fracture [Not Recovered/Not Resolved]
  - Pain in extremity [Unknown]
  - Fracture nonunion [Unknown]
  - Depression [Not Recovered/Not Resolved]
  - Type 2 diabetes mellitus [Not Recovered/Not Resolved]
  - Inflammation [Unknown]
  - Osteopenia [Unknown]
  - Impaired healing [Unknown]
  - Internal fixation of fracture [Unknown]
  - Anxiety [Not Recovered/Not Resolved]
  - Oral surgery [Not Recovered/Not Resolved]
  - Arthritis [Unknown]
  - Muscle spasms [Not Recovered/Not Resolved]
  - Back pain [Unknown]
  - Intervertebral disc protrusion [Unknown]
  - Hyperlipidaemia [Not Recovered/Not Resolved]
  - Pain [Unknown]
  - Fall [Unknown]

NARRATIVE: CASE EVENT DATE: 2004
